FAERS Safety Report 9975343 (Version 1)
Quarter: 2014Q1

REPORT INFORMATION
  Report Type: Report from Study
  Country: US (occurrence: US)
  Receive Date: 20140306
  Receipt Date: 20140306
  Transmission Date: 20141002
  Serious: No
  Sender: FDA-Public Use
  Company Number: US-ABBVIE-13P-163-1155534-00

PATIENT
  Age: 59 Year
  Sex: Male

DRUGS (9)
  1. HUMIRA [Suspect]
     Indication: CROHN^S DISEASE
     Dates: start: 20130712
  2. SIMVASTATIN [Concomitant]
     Indication: BLOOD CHOLESTEROL
     Dosage: 20MG DAILY
  3. LISINOPRIL [Concomitant]
     Indication: BLOOD PRESSURE
     Dosage: 10MG DAILY
  4. BABY ASA [Concomitant]
     Indication: PROPHYLAXIS
     Dosage: DAILY
  5. ISONIAZID [Concomitant]
     Indication: MYCOBACTERIUM TUBERCULOSIS COMPLEX TEST POSITIVE
     Dosage: 300MG DAILY
  6. OMEPRAZOLE [Concomitant]
     Indication: GASTROOESOPHAGEAL REFLUX DISEASE
  7. VITAMIN B 12 [Concomitant]
     Indication: PROPHYLAXIS
  8. VITAMIN D3 [Concomitant]
     Indication: PROPHYLAXIS
     Dosage: 1000 IU DAILY
  9. MEGA 3 [Concomitant]
     Indication: PROPHYLAXIS
     Dosage: DAILY

REACTIONS (1)
  - Pain [Recovering/Resolving]
